FAERS Safety Report 6841379-0 (Version None)
Quarter: 2010Q3

REPORT INFORMATION
  Report Type: 
  Country: None (occurrence: None)
  Receive Date: 20100714
  Receipt Date: 20071008
  Transmission Date: 20110219
  Serious: No
  Sender: FDA-Public Use
  Company Number: US-PFIZER INC-2007052254

PATIENT
  Sex: Female
  Weight: 53.636 kg

DRUGS (10)
  1. CHANTIX [Suspect]
     Dates: start: 20070601
  2. TRAZODONE HYDROCHLORIDE [Concomitant]
     Indication: INITIAL INSOMNIA
  3. TRIAMTERENE [Concomitant]
  4. ZOCOR [Concomitant]
  5. NIFEDIPINE [Concomitant]
  6. ACTONEL [Concomitant]
  7. VITAMINS [Concomitant]
  8. MINERALS NOS [Concomitant]
  9. ACETYLSALICYLIC ACID [Concomitant]
  10. XANAX [Concomitant]
     Dates: start: 20070301

REACTIONS (4)
  - CONSTIPATION [None]
  - FLATULENCE [None]
  - INSOMNIA [None]
  - NAUSEA [None]
